FAERS Safety Report 16846774 (Version 2)
Quarter: 2019Q3

REPORT INFORMATION
  Report Type: Spontaneous
  Country: AU (occurrence: AU)
  Receive Date: 20190924
  Receipt Date: 20190924
  Transmission Date: 20191005
  Serious: Yes (Hospitalization, Other)
  Sender: FDA-Public Use
  Company Number: PHHY2019AU219747

PATIENT
  Age: 65 Year
  Sex: Male

DRUGS (13)
  1. TACROLIMUS. [Suspect]
     Active Substance: TACROLIMUS
     Indication: IMMUNOSUPPRESSANT DRUG THERAPY
     Dosage: UNK UKN, UNK
     Route: 065
  2. VALGANCICLOVIR. [Suspect]
     Active Substance: VALGANCICLOVIR
     Indication: ANTIVIRAL PROPHYLAXIS
     Dosage: 450 MG, QW2
     Route: 048
  3. VALGANCICLOVIR. [Suspect]
     Active Substance: VALGANCICLOVIR
     Dosage: 450 MG, QD
     Route: 065
  4. MYCOPHENOLATE MOFETIL. [Suspect]
     Active Substance: MYCOPHENOLATE MOFETIL
     Indication: LIVER TRANSPLANT
  5. TACROLIMUS. [Suspect]
     Active Substance: TACROLIMUS
     Indication: LIVER TRANSPLANT
  6. MYCOPHENOLATE MOFETIL. [Suspect]
     Active Substance: MYCOPHENOLATE MOFETIL
     Indication: IMMUNOSUPPRESSANT DRUG THERAPY
     Dosage: UNK UKN, UNK
     Route: 065
  7. VALGANCICLOVIR. [Suspect]
     Active Substance: VALGANCICLOVIR
     Dosage: 450 MG, BID
     Route: 048
  8. PREDNISOLONE. [Suspect]
     Active Substance: PREDNISOLONE
     Indication: LIVER TRANSPLANT
  9. PREDNISOLONE. [Suspect]
     Active Substance: PREDNISOLONE
     Indication: IMMUNOSUPPRESSANT DRUG THERAPY
     Dosage: UNK UKN, UNK
     Route: 065
  10. VALGANCICLOVIR. [Suspect]
     Active Substance: VALGANCICLOVIR
     Dosage: 200 MG, QW3
     Route: 048
  11. PREDNISOLONE. [Suspect]
     Active Substance: PREDNISOLONE
     Indication: RENAL TRANSPLANT
     Dosage: 7.5 MG, QD
     Route: 065
  12. TACROLIMUS. [Suspect]
     Active Substance: TACROLIMUS
     Indication: RENAL TRANSPLANT
  13. MYCOPHENOLATE MOFETIL. [Suspect]
     Active Substance: MYCOPHENOLATE MOFETIL
     Indication: RENAL TRANSPLANT

REACTIONS (5)
  - Product use in unapproved indication [Unknown]
  - Drug resistance [Unknown]
  - Cytomegalovirus oesophagitis [Recovered/Resolved]
  - Cytomegalovirus viraemia [Unknown]
  - Condition aggravated [Unknown]
